FAERS Safety Report 8268517-X (Version None)
Quarter: 2012Q2

REPORT INFORMATION
  Report Type: 
  Country: None (occurrence: None)
  Receive Date: 20120409
  Receipt Date: 20120403
  Transmission Date: 20120825
  Serious: Yes (Other)
  Sender: FDA-Public Use
  Company Number: US-GLAXOSMITHKLINE-A0963129A

PATIENT
  Sex: Male

DRUGS (4)
  1. WELLBUTRIN [Concomitant]
  2. PROZAC [Concomitant]
  3. LAMICTAL [Suspect]
     Indication: BIPOLAR DISORDER
     Dosage: 200MG TWICE PER DAY
     Route: 048
     Dates: start: 20110719
  4. ATIVAN [Concomitant]

REACTIONS (1)
  - STOMATITIS [None]
